FAERS Safety Report 10061552 (Version 1)
Quarter: 2014Q2

REPORT INFORMATION
  Report Type: Spontaneous
  Country: NO (occurrence: NO)
  Receive Date: 20140407
  Receipt Date: 20140407
  Transmission Date: 20141212
  Serious: Yes (Death)
  Sender: FDA-Public Use
  Company Number: NO-JNJFOC-20140316683

PATIENT
  Sex: 0

DRUGS (2)
  1. RISPERIDONE [Suspect]
     Indication: PSYCHOTIC DISORDER
     Route: 065
  2. HALOPERIDOL [Suspect]
     Indication: PSYCHOTIC DISORDER
     Route: 065

REACTIONS (1)
  - Death [Fatal]
